FAERS Safety Report 8408265-6 (Version None)
Quarter: 2012Q2

REPORT INFORMATION
  Report Type: 
  Country: None (occurrence: None)
  Receive Date: 20120529
  Receipt Date: 20051122
  Transmission Date: 20120825
  Serious: Yes (Hospitalization, Other)
  Sender: FDA-Public Use
  Company Number: 02100-JPN-05-0528

PATIENT
  Age: 54 Year
  Sex: Female
  Weight: 62 kg

DRUGS (7)
  1. ASPIRIN [Concomitant]
  2. CRAVIT (LEVOFLOXACIN) TABLET, 100 MG [Concomitant]
  3. SELOKEN (METOPROLOL TARTRATE) TABLET, 20 MG [Concomitant]
  4. PLETAL [Suspect]
     Dosage: 100 MG, BID, ORAL
     Route: 048
     Dates: start: 20050824, end: 20050922
  5. EUGLUCON (GLIBENCLAMIDE) TABLET, 2.5 MG [Concomitant]
  6. BASEN (VOGLIBOSE) TABLET, .3 MG [Concomitant]
  7. GLYCORAN (METFORMIN HYDROCHLORIDE) TABLET, 250 MG [Concomitant]

REACTIONS (3)
  - GRANULOCYTOPENIA [None]
  - PYELONEPHRITIS [None]
  - SEPSIS [None]
